FAERS Safety Report 22157739 (Version 2)
Quarter: 2023Q2

REPORT INFORMATION
  Report Type: Spontaneous
  Country: US (occurrence: US)
  Receive Date: 20230330
  Receipt Date: 20230413
  Transmission Date: 20230721
  Serious: Yes (Life-Threatening, Hospitalization)
  Sender: FDA-Public Use
  Company Number: US-TEVA-2023-US-2870018

PATIENT
  Age: 56 Year
  Sex: Male

DRUGS (6)
  1. EPINEPHRINE [Suspect]
     Active Substance: EPINEPHRINE
     Indication: Shock
     Route: 065
  2. CROFAB [Suspect]
     Active Substance: CROTALIDAE POLYVALENT IMMUNE FAB (OVINE)
     Indication: Snake bite
     Route: 065
  3. ANAVIP [Suspect]
     Active Substance: PIT VIPER (CROTALINAE) IMMUNE GLOBULIN ANTIVENIN (EQUINE)
     Indication: Snake bite
     Route: 050
  4. NOREPINEPHRINE [Concomitant]
     Active Substance: NOREPINEPHRINE
     Indication: Shock
     Route: 065
  5. VASOPRESSIN [Concomitant]
     Active Substance: VASOPRESSIN
     Indication: Shock
     Route: 065
  6. PHENYLEPHRINE [Concomitant]
     Active Substance: PHENYLEPHRINE HYDROCHLORIDE
     Indication: Shock
     Route: 065

REACTIONS (2)
  - Kounis syndrome [Recovering/Resolving]
  - Arteriospasm coronary [Recovering/Resolving]
